FAERS Safety Report 19735025 (Version 1)
Quarter: 2021Q3

REPORT INFORMATION
  Report Type: Spontaneous
  Country: US (occurrence: US)
  Receive Date: 20210823
  Receipt Date: 20210823
  Transmission Date: 20211014
  Serious: Yes (Other)
  Sender: FDA-Public Use
  Company Number: US-LA JOLLA PHARMACEUTICAL-2021TP000009

PATIENT
  Age: 63 Year
  Sex: Male

DRUGS (1)
  1. XERAVA [Suspect]
     Active Substance: ERAVACYCLINE DIHYDROCHLORIDE
     Indication: ABDOMINAL INFECTION
     Route: 042
     Dates: start: 2021, end: 202108

REACTIONS (2)
  - Delirium [Unknown]
  - Mental status changes [Unknown]

NARRATIVE: CASE EVENT DATE: 20210805
